FAERS Safety Report 12843196 (Version 3)
Quarter: 2016Q4

REPORT INFORMATION
  Report Type: Spontaneous
  Country: US (occurrence: US)
  Receive Date: 20161013
  Receipt Date: 20161216
  Transmission Date: 20170207
  Serious: No
  Sender: FDA-Public Use
  Company Number: US-GLAXOSMITHKLINE-US2016149429

PATIENT
  Age: 68 Year
  Sex: Female

DRUGS (6)
  1. LOVAZA [Suspect]
     Active Substance: OMEGA-3-ACID ETHYL ESTERS
     Indication: BLOOD TRIGLYCERIDES INCREASED
     Dosage: 2 G, BID
     Route: 048
     Dates: start: 201609
  2. ATENOLOL. [Concomitant]
     Active Substance: ATENOLOL
  3. VOLTAREN [Concomitant]
     Active Substance: DICLOFENAC SODIUM
  4. TRAMADOL. [Concomitant]
     Active Substance: TRAMADOL
  5. MUPIROCIN. [Concomitant]
     Active Substance: MUPIROCIN
  6. TOPAMAX [Concomitant]
     Active Substance: TOPIRAMATE

REACTIONS (3)
  - Vomiting [Unknown]
  - Urticaria [Unknown]
  - Product quality issue [Unknown]

NARRATIVE: CASE EVENT DATE: 201609
